FAERS Safety Report 9845215 (Version 1)
Quarter: 2014Q1

REPORT INFORMATION
  Report Type: Spontaneous
  Country: US (occurrence: None)
  Receive Date: 20140123
  Receipt Date: 20140123
  Transmission Date: 20141002
  Serious: Yes (Disabling)
  Sender: FDA-Public Use
  Company Number: None

PATIENT
  Age: 87 Year
  Sex: Female
  Weight: 50.8 kg

DRUGS (1)
  1. TARCEVA 150 MG GENENTECH [Suspect]
     Indication: LUNG ADENOCARCINOMA STAGE IV
     Dosage: 1 PILL  ONCE DAILY  TAKEN BY MOUTH
     Route: 048
     Dates: start: 20130201, end: 20140120

REACTIONS (10)
  - Decreased appetite [None]
  - Rash generalised [None]
  - Pruritus [None]
  - Infection [None]
  - Dry skin [None]
  - Pain [None]
  - Weight decreased [None]
  - Fatigue [None]
  - Burning sensation [None]
  - Excoriation [None]
